FAERS Safety Report 6050075-1 (Version None)
Quarter: 2009Q1

REPORT INFORMATION
  Report Type: 
  Country: None (occurrence: None)
  Receive Date: 20090121
  Receipt Date: 20090112
  Transmission Date: 20090719
  Serious: Yes (Hospitalization)
  Sender: FDA-Public Use
  Company Number: MEDI-0007714

PATIENT
  Age: 2 Month
  Sex: Male
  Weight: 4.1368 kg

DRUGS (2)
  1. SYNAGIS [Suspect]
     Indication: PREMATURE BABY
     Dosage: 64 MG, INTRAMUSCULAR
     Route: 030
     Dates: start: 20081112, end: 20081215
  2. SYNAGIS [Suspect]
     Indication: PREMATURE BABY
     Dosage: 64 MG, INTRAMUSCULAR
     Route: 030
     Dates: start: 20081112

REACTIONS (5)
  - DACTYLITIS [None]
  - HAEMATOCRIT DECREASED [None]
  - HAEMOGLOBIN DECREASED [None]
  - NASAL CONGESTION [None]
  - RED BLOOD CELL COUNT DECREASED [None]
